FAERS Safety Report 18822759 (Version 1)
Quarter: 2021Q1

REPORT INFORMATION
  Report Type: Spontaneous
  Country: US (occurrence: US)
  Receive Date: 20210202
  Receipt Date: 20210202
  Transmission Date: 20210419
  Serious: Yes (Other)
  Sender: FDA-Public Use
  Company Number: US-BAYER-2021-042672

PATIENT
  Sex: Male

DRUGS (2)
  1. AFRIN ORIGINAL [Suspect]
     Active Substance: OXYMETAZOLINE HYDROCHLORIDE
     Indication: SINUSITIS
     Dosage: UNK
     Route: 065
  2. ANTIBIOTIC [CHLORAMPHENICOL] [Concomitant]
     Route: 065

REACTIONS (2)
  - Product use in unapproved indication [Unknown]
  - Drug dependence [Unknown]
